FAERS Safety Report 8540342-1 (Version None)
Quarter: 2012Q3

REPORT INFORMATION
  Report Type: 
  Country: None (occurrence: None)
  Receive Date: 20120726
  Receipt Date: 20120628
  Transmission Date: 20120928
  Serious: No
  Sender: FDA-Public Use
  Company Number: US-009507513-1207USA006607

PATIENT

DRUGS (2)
  1. CLARITIN-D 24 HOUR [Suspect]
     Indication: PRODUCT USED FOR UNKNOWN INDICATION
     Dosage: UNK, QD
     Dates: start: 20120621
  2. CLARITIN-D 24 HOUR [Suspect]
     Dosage: 10 MG, ONCE
     Dates: start: 20120628

REACTIONS (1)
  - THERAPEUTIC RESPONSE DECREASED [None]
